FAERS Safety Report 16562106 (Version 1)
Quarter: 2019Q3

REPORT INFORMATION
  Report Type: Spontaneous
  Country: ES (occurrence: ES)
  Receive Date: 20190711
  Receipt Date: 20190711
  Transmission Date: 20191004
  Serious: Yes (Hospitalization, Disabling, Other)
  Sender: FDA-Public Use
  Company Number: ES-MYLANLABS-2019M1064281

PATIENT
  Age: 71 Year
  Sex: Male

DRUGS (2)
  1. OXALIPLATIN. [Suspect]
     Active Substance: OXALIPLATIN
     Indication: ADENOCARCINOMA OF COLON
     Dosage: RECEIVED 8 CYCLES
     Route: 065
     Dates: end: 201405
  2. CAPECITABINE. [Suspect]
     Active Substance: CAPECITABINE
     Indication: ADENOCARCINOMA OF COLON
     Dosage: RECEIVED 8 CYCLES
     Route: 065
     Dates: end: 201405

REACTIONS (5)
  - Compartment syndrome [Recovered/Resolved with Sequelae]
  - Extremity necrosis [Recovered/Resolved with Sequelae]
  - Mucormycosis [Recovered/Resolved with Sequelae]
  - Lung infection [Recovered/Resolved]
  - Thrombosis [Recovered/Resolved]
